FAERS Safety Report 6594815-1 (Version None)
Quarter: 2010Q1

REPORT INFORMATION
  Report Type: 
  Country: None (occurrence: None)
  Receive Date: 20100222
  Receipt Date: 20100105
  Transmission Date: 20100710
  Serious: Yes (Death, Other)
  Sender: FDA-Public Use
  Company Number: KR-CELGENEUS-286-20785-10021592

PATIENT

DRUGS (10)
  1. THALIDOMIDE [Suspect]
     Indication: MULTIPLE MYELOMA
     Route: 048
  2. THALIDOMIDE [Suspect]
     Route: 048
  3. THALIDOMIDE [Suspect]
     Route: 048
  4. BORTEZOMIB [Suspect]
     Indication: MULTIPLE MYELOMA
     Route: 040
  5. DEXAMETHASONE [Suspect]
     Indication: MULTIPLE MYELOMA
     Route: 048
  6. MELPHALAN [Suspect]
     Indication: MULTIPLE MYELOMA
     Route: 048
  7. MELPHALAN [Suspect]
     Route: 048
  8. PREDNISOLONE [Suspect]
     Indication: MULTIPLE MYELOMA
     Route: 048
  9. PREDNISOLONE [Suspect]
     Route: 048
  10. ASPIRIN [Concomitant]
     Route: 048

REACTIONS (1)
  - CARDIAC DISORDER [None]
